FAERS Safety Report 5869596-7 (Version None)
Quarter: 2008Q3

REPORT INFORMATION
  Report Type: 
  Country: None (occurrence: None)
  Receive Date: 20080904
  Receipt Date: 20070920
  Transmission Date: 20090109
  Serious: No
  Sender: FDA-Public Use
  Company Number: US-KINGPHARMUSA00001-K200701225

PATIENT

DRUGS (3)
  1. CYTOMEL [Suspect]
     Indication: THYROID DISORDER
     Dosage: 5 MCG, 7 TO 8 TIMES PER DAY
     Dates: start: 19980101
  2. SYNTHROID [Suspect]
  3. ESTROGEN NOS [Concomitant]
     Dosage: 2 MG, QD

REACTIONS (8)
  - ASTHENIA [None]
  - DRY SKIN [None]
  - ERYTHEMA [None]
  - EYE DISORDER [None]
  - FEELING ABNORMAL [None]
  - LIMB DISCOMFORT [None]
  - MUSCULOSKELETAL DISCOMFORT [None]
  - PRURITUS [None]
